FAERS Safety Report 6349318-6 (Version None)
Quarter: 2009Q3

REPORT INFORMATION
  Report Type: 
  Country: None (occurrence: None)
  Receive Date: 20090911
  Receipt Date: 20090903
  Transmission Date: 20100115
  Serious: Yes (Hospitalization)
  Sender: FDA-Public Use
  Company Number: B0591295A

PATIENT
  Sex: Female
  Weight: 2.3 kg

DRUGS (1)
  1. RETROVIR [Suspect]
     Indication: ANTIVIRAL PROPHYLAXIS
     Route: 048
     Dates: start: 20090204

REACTIONS (4)
  - C-REACTIVE PROTEIN INCREASED [None]
  - CSF PROTEIN INCREASED [None]
  - INTESTINAL OBSTRUCTION [None]
  - NECROTISING COLITIS [None]
